FAERS Safety Report 25405112 (Version 3)
Quarter: 2025Q2

REPORT INFORMATION
  Report Type: Report from Study
  Country: CN (occurrence: CN)
  Receive Date: 20250606
  Receipt Date: 20250619
  Transmission Date: 20250716
  Serious: Yes (Hospitalization)
  Sender: ROCHE
  Company Number: CN-ROCHE-10000302319

PATIENT
  Age: 76 Year
  Sex: Female
  Weight: 32 kg

DRUGS (26)
  1. POLATUZUMAB VEDOTIN [Suspect]
     Active Substance: POLATUZUMAB VEDOTIN
     Indication: Diffuse large B-cell lymphoma
     Route: 042
     Dates: start: 20241101, end: 20241101
  2. POLATUZUMAB VEDOTIN [Suspect]
     Active Substance: POLATUZUMAB VEDOTIN
     Route: 042
     Dates: start: 20250104, end: 20250104
  3. LENALIDOMIDE [Suspect]
     Active Substance: LENALIDOMIDE
     Indication: Diffuse large B-cell lymphoma
     Route: 048
     Dates: start: 20241101, end: 20241110
  4. LENALIDOMIDE [Suspect]
     Active Substance: LENALIDOMIDE
     Route: 048
     Dates: start: 20250104, end: 20250113
  5. RITUXIMAB [Suspect]
     Active Substance: RITUXIMAB
     Indication: Diffuse large B-cell lymphoma
     Route: 042
     Dates: start: 20241031, end: 20241031
  6. ZANUBRUTINIB [Suspect]
     Active Substance: ZANUBRUTINIB
     Indication: Diffuse large B-cell lymphoma
     Route: 048
     Dates: start: 20241101, end: 20250102
  7. Chlorhexidine gargle compound [Concomitant]
     Route: 050
     Dates: start: 20241026, end: 20241026
  8. ACYCLOVIR [Concomitant]
     Active Substance: ACYCLOVIR
     Route: 048
     Dates: start: 20241028
  9. METHYLPREDNISOLONE SODIUM SUCCINATE [Concomitant]
     Active Substance: METHYLPREDNISOLONE SODIUM SUCCINATE
     Route: 042
     Dates: start: 20241028, end: 20241028
  10. METHYLPREDNISOLONE SODIUM SUCCINATE [Concomitant]
     Active Substance: METHYLPREDNISOLONE SODIUM SUCCINATE
     Route: 042
     Dates: start: 20241029, end: 20241101
  11. OMEPRAZOLE SODIUM [Concomitant]
     Active Substance: OMEPRAZOLE SODIUM
     Route: 048
     Dates: start: 20241028, end: 20241028
  12. OMEPRAZOLE SODIUM [Concomitant]
     Active Substance: OMEPRAZOLE SODIUM
     Route: 048
     Dates: start: 20241029, end: 20241110
  13. GLYCERIN [Concomitant]
     Active Substance: GLYCERIN
     Route: 050
     Dates: start: 20241029, end: 20241029
  14. ENTECAVIR [Concomitant]
     Active Substance: ENTECAVIR
     Route: 048
     Dates: start: 20241030
  15. PROMETHAZINE HYDROCHLORIDE [Concomitant]
     Active Substance: PROMETHAZINE HYDROCHLORIDE
     Route: 030
     Dates: start: 20241031, end: 20241101
  16. SULFAMETHOXAZOLE [Concomitant]
     Active Substance: SULFAMETHOXAZOLE
     Route: 048
     Dates: start: 20241031
  17. ACETAMINOPHEN [Concomitant]
     Active Substance: ACETAMINOPHEN
     Route: 048
     Dates: start: 20241101
  18. DEXAMETHASONE SODIUM PHOSPHATE [Concomitant]
     Active Substance: DEXAMETHASONE SODIUM PHOSPHATE
     Route: 050
     Dates: start: 20241101, end: 20241101
  19. METHOTREXATE [Concomitant]
     Active Substance: METHOTREXATE
     Route: 050
     Dates: start: 20241101, end: 20241101
  20. CYTARABINE HYDROCHLORIDE [Concomitant]
     Active Substance: CYTARABINE HYDROCHLORIDE
     Route: 050
     Dates: start: 20241101, end: 20241101
  21. PREDNISONE ACETATE [Concomitant]
     Active Substance: PREDNISONE ACETATE
     Route: 048
     Dates: start: 20241101, end: 20241110
  22. LEUCOGEN [Concomitant]
     Active Substance: LEUCOGEN
     Route: 048
     Dates: start: 20241101
  23. AMLODIPINE\VALSARTAN [Concomitant]
     Active Substance: AMLODIPINE\VALSARTAN
     Indication: Hypertension
     Route: 048
  24. EUTHYROX [Concomitant]
     Active Substance: LEVOTHYROXINE SODIUM
     Indication: Hypothyroidism
     Route: 048
  25. ROPINIROLE HYDROCHLORIDE [Concomitant]
     Active Substance: ROPINIROLE HYDROCHLORIDE
     Route: 048
  26. BISOPROLOL FUMARATE [Concomitant]
     Active Substance: BISOPROLOL FUMARATE
     Route: 048

REACTIONS (1)
  - Subdural haematoma [Recovered/Resolved]

NARRATIVE: CASE EVENT DATE: 20241101
